FAERS Safety Report 5835504-8 (Version None)
Quarter: 2008Q3

REPORT INFORMATION
  Report Type: 
  Country: None (occurrence: None)
  Receive Date: 20080806
  Receipt Date: 20080804
  Transmission Date: 20090109
  Serious: Yes (Death, Hospitalization)
  Sender: FDA-Public Use
  Company Number: A0581483A

PATIENT
  Age: 67 Year
  Sex: Female
  Weight: 94.5 kg

DRUGS (2)
  1. TOPOTECAN [Suspect]
     Indication: ENDOMETRIAL CANCER
     Dosage: 3MGM2 CYCLIC
     Route: 042
     Dates: start: 20051010
  2. COUMADIN [Suspect]
     Dosage: 1MG PER DAY
     Route: 048
     Dates: start: 20051006

REACTIONS (3)
  - DYSPNOEA [None]
  - METASTATIC UTERINE CANCER [None]
  - RECTAL HAEMORRHAGE [None]
